FAERS Safety Report 9835584 (Version 2)
Quarter: 2014Q3

REPORT INFORMATION
  Report Type: Spontaneous
  Country: US (occurrence: US)
  Receive Date: 20140122
  Receipt Date: 20140813
  Transmission Date: 20150326
  Serious: Yes (Hospitalization, Other)
  Sender: FDA-Public Use
  Company Number: US-009507513-1401USA009913

PATIENT
  Sex: Female
  Weight: 92.52 kg

DRUGS (1)
  1. NUVARING [Suspect]
     Active Substance: ETHINYL ESTRADIOL\ETONOGESTREL
     Indication: CONTRACEPTION
     Dosage: INSERT EVERY MONTH FOR 3 WEEKS
     Route: 067
     Dates: start: 20090619, end: 20091104

REACTIONS (5)
  - Hypercoagulation [Unknown]
  - Back pain [Not Recovered/Not Resolved]
  - Pulmonary embolism [Unknown]
  - Migraine [Unknown]
  - Deep vein thrombosis [Unknown]

NARRATIVE: CASE EVENT DATE: 20091104
